FAERS Safety Report 6430158-4 (Version None)
Quarter: 2009Q4

REPORT INFORMATION
  Report Type: 
  Country: None (occurrence: None)
  Receive Date: 20091104
  Receipt Date: 20091029
  Transmission Date: 20100525
  Serious: Yes (Other)
  Sender: FDA-Public Use
  Company Number: 1000009811

PATIENT
  Age: 2 Year
  Sex: Male

DRUGS (2)
  1. LEXAPRO [Suspect]
     Dosage: 60 MG (60 MG, 1 IN 1 D), TRANSPLACENTAL
     Route: 064
     Dates: end: 20070101
  2. ACETAMINOPHEN [Concomitant]

REACTIONS (2)
  - AUTISM [None]
  - MATERNAL DRUGS AFFECTING FOETUS [None]
